FAERS Safety Report 4424139-X (Version None)
Quarter: 2004Q3

REPORT INFORMATION
  Report Type: 
  Country: None (occurrence: None)
  Receive Date: 20040810
  Receipt Date: 20040810
  Transmission Date: 20050211
  Serious: Yes (Other)
  Sender: FDA-Public Use
  Company Number: None

PATIENT
  Age: 51 Year
  Sex: Male
  Weight: 100.2449 kg

DRUGS (5)
  1. NIACIN SA 250 MG [Suspect]
     Indication: HIGH DENSITY LIPOPROTEIN DECREASED
     Dosage: 500 MG Q PM
     Dates: start: 20040427, end: 20040505
  2. ASPIRIN [Concomitant]
  3. ZYPREXA [Concomitant]
  4. ZOLOFT [Concomitant]
  5. BENZTROPINE MESYLATE [Concomitant]

REACTIONS (1)
  - THROMBOCYTOPENIA [None]
